FAERS Safety Report 16036776 (Version 1)
Quarter: 2019Q1

REPORT INFORMATION
  Report Type: Spontaneous
  Country: US (occurrence: US)
  Receive Date: 20190206
  Receipt Date: 20190206
  Transmission Date: 20190418
  Serious: Yes (Hospitalization)
  Sender: FDA-Public Use
  Company Number: None

PATIENT
  Age: 12 Year
  Sex: Male
  Weight: 38.6 kg

DRUGS (7)
  1. DEXAMETHASONE. [Suspect]
     Active Substance: DEXAMETHASONE
     Dates: end: 20181031
  2. CYTARABINE. [Suspect]
     Active Substance: CYTARABINE
     Dates: end: 20181026
  3. METHOTREXATE. [Suspect]
     Active Substance: METHOTREXATE
     Dates: end: 20181026
  4. VINCRISTINE SULFATE. [Suspect]
     Active Substance: VINCRISTINE SULFATE
     Dates: end: 20181027
  5. MITOXANTRONE HYDROCHLORIDE. [Suspect]
     Active Substance: MITOXANTRONE HYDROCHLORIDE
     Dates: end: 20181014
  6. ONCASPAR [Suspect]
     Active Substance: PEGASPARGASE
     Dates: end: 20181029
  7. HYDROCORTISONE. [Suspect]
     Active Substance: HYDROCORTISONE
     Dates: end: 20181026

REACTIONS (15)
  - Dialysis [None]
  - Leptotrichia infection [None]
  - Neutropenia [None]
  - Pulse absent [None]
  - Tachycardia [None]
  - Pulmonary oedema [None]
  - Urine output decreased [None]
  - Bacteraemia [None]
  - Left ventricular dysfunction [None]
  - Blood creatine increased [None]
  - Thrombocytopenia [None]
  - Haemorrhage [None]
  - Hypotension [None]
  - Effusion [None]
  - Pulmonary alveolar haemorrhage [None]

NARRATIVE: CASE EVENT DATE: 20181101
